FAERS Safety Report 8969320 (Version 1)
Quarter: 2012Q4

REPORT INFORMATION
  Report Type: 
  Country: US (occurrence: US)
  Receive Date: 20121218
  Receipt Date: 20121218
  Transmission Date: 20130627
  Serious: Yes (Other)
  Sender: FDA-Public Use
  Company Number: US-BRISTOL-MYERS SQUIBB COMPANY-16279242

PATIENT
  Age: 9 Year
  Sex: Male
  Weight: 54.42 kg

DRUGS (6)
  1. ABILIFY [Suspect]
     Indication: OPPOSITIONAL DEFIANT DISORDER
     Dosage: 6 or 7 months now
     Route: 048
     Dates: start: 20110404, end: 20110916
  2. ABILIFY [Suspect]
     Indication: AUTISM SPECTRUM DISORDER
     Dosage: 6 or 7 months now
     Route: 048
     Dates: start: 20110404, end: 20110916
  3. ZYPREXIN [Concomitant]
  4. LEXAPRO [Concomitant]
     Indication: ANXIETY
  5. LEXAPRO [Concomitant]
     Indication: AFFECTIVE DISORDER
  6. TENEX [Concomitant]
     Indication: IMPULSIVE BEHAVIOUR

REACTIONS (3)
  - Weight increased [Unknown]
  - Aggression [Unknown]
  - Increased appetite [Unknown]
